FAERS Safety Report 9150569 (Version 1)
Quarter: 2013Q1

REPORT INFORMATION
  Report Type: Spontaneous
  Country: US (occurrence: None)
  Receive Date: 20130305
  Receipt Date: 20130305
  Transmission Date: 20140127
  Serious: Yes (Disabling)
  Sender: FDA-Public Use
  Company Number: None

PATIENT
  Age: 47 Year
  Sex: Male
  Weight: 73.48 kg

DRUGS (1)
  1. CIPROFLOXACIN 500MG [Suspect]
     Indication: DIVERTICULITIS
     Dates: start: 20130215, end: 20130223

REACTIONS (7)
  - Arthralgia [None]
  - Pain in extremity [None]
  - Muscle spasms [None]
  - Muscle spasms [None]
  - Joint crepitation [None]
  - Gait disturbance [None]
  - Tendon pain [None]
